FAERS Safety Report 17993063 (Version 2)
Quarter: 2020Q3

REPORT INFORMATION
  Report Type: Spontaneous
  Country: JP (occurrence: JP)
  Receive Date: 20200708
  Receipt Date: 20200827
  Transmission Date: 20201103
  Serious: Yes (Life-Threatening, Other)
  Sender: FDA-Public Use
  Company Number: JP-AMGEN-JPNSP2020108576

PATIENT
  Sex: Female

DRUGS (2)
  1. G?LASTA [Suspect]
     Active Substance: PEGFILGRASTIM
     Indication: PRODUCT USED FOR UNKNOWN INDICATION
     Dosage: 3.6 MG
     Route: 058
     Dates: start: 20200620, end: 20200620
  2. ACETAMINOPHEN. [Concomitant]
     Active Substance: ACETAMINOPHEN
     Indication: PYREXIA
     Dosage: UNK
     Route: 065

REACTIONS (2)
  - Pyrexia [Unknown]
  - Aortic wall hypertrophy [Recovering/Resolving]

NARRATIVE: CASE EVENT DATE: 20200624
